FAERS Safety Report 5506106-8 (Version None)
Quarter: 2007Q4

REPORT INFORMATION
  Report Type: 
  Country: None (occurrence: None)
  Receive Date: 20071105
  Receipt Date: 20071031
  Transmission Date: 20080405
  Serious: Yes (Death, Other)
  Sender: FDA-Public Use
  Company Number: CA-BRISTOL-MYERS SQUIBB COMPANY-13958384

PATIENT
  Age: 91 Year
  Sex: Female
  Weight: 41 kg

DRUGS (3)
  1. DESYREL [Suspect]
     Indication: DEPRESSION
     Dosage: DOSE:350MG DAILY THEN 400 MG THEN 350MG DAILY AND THEN DECREASED TO LOWER DOSE.
     Route: 048
     Dates: start: 20060301, end: 20061201
  2. OLANZAPINE [Concomitant]
     Dates: start: 20060301
  3. ATIVAN [Concomitant]

REACTIONS (2)
  - DYSPHAGIA [None]
  - PNEUMONIA ASPIRATION [None]
